FAERS Safety Report 7386599-4 (Version None)
Quarter: 2011Q1

REPORT INFORMATION
  Report Type: 
  Country: None (occurrence: None)
  Receive Date: 20110323
  Receipt Date: 20110307
  Transmission Date: 20110831
  Serious: Yes (Death, Other)
  Sender: FDA-Public Use
  Company Number: 2011MA002342

PATIENT
  Age: 86 Year
  Sex: Female

DRUGS (3)
  1. ZOPICLONE (ZOPICLONE) [Suspect]
     Dosage: 7.5 MG;QD
  2. FEVERALL [Suspect]
  3. CITALOPRAM HYDROBROMIDE [Suspect]

REACTIONS (18)
  - HYPOVENTILATION [None]
  - DYSARTHRIA [None]
  - INSOMNIA [None]
  - PANIC DISORDER [None]
  - DRY MOUTH [None]
  - EMPHYSEMA [None]
  - MUSCULOSKELETAL STIFFNESS [None]
  - FEAR [None]
  - SOMNOLENCE [None]
  - HAEMOGLOBIN DECREASED [None]
  - SPEECH DISORDER [None]
  - TRANSIENT ISCHAEMIC ATTACK [None]
  - VOMITING [None]
  - HAIR COLOUR CHANGES [None]
  - COORDINATION ABNORMAL [None]
  - MOVEMENT DISORDER [None]
  - MALAISE [None]
  - LUNG INFECTION [None]
